FAERS Safety Report 23150847 (Version 1)
Quarter: 2023Q4

REPORT INFORMATION
  Report Type: Spontaneous
  Country: US (occurrence: US)
  Receive Date: 20231106
  Receipt Date: 20231106
  Transmission Date: 20240110
  Serious: No
  Sender: FDA-Public Use
  Company Number: US-BAUSCH-BL-2023-016260

PATIENT
  Age: 54 Year
  Sex: Female

DRUGS (37)
  1. BRYHALI [Suspect]
     Active Substance: HALOBETASOL PROPIONATE
     Indication: Psoriasis
     Route: 065
     Dates: start: 202007
  2. FLUOCINONIDE [Suspect]
     Active Substance: FLUOCINONIDE
     Indication: Psoriasis
     Route: 065
     Dates: start: 202111
  3. DUOBRII [Suspect]
     Active Substance: HALOBETASOL PROPIONATE\TAZAROTENE
     Indication: Psoriasis
     Route: 065
     Dates: start: 2018
  4. DUOBRII [Suspect]
     Active Substance: HALOBETASOL PROPIONATE\TAZAROTENE
     Indication: Hyperkeratosis
  5. HYDROCORTISONE [Suspect]
     Active Substance: HYDROCORTISONE
     Indication: Psoriasis
     Route: 061
     Dates: start: 202204
  6. SKYRIZI [Suspect]
     Active Substance: RISANKIZUMAB-RZAA
     Indication: Psoriasis
     Route: 065
     Dates: start: 2022
  7. CLOBETASOL [Suspect]
     Active Substance: CLOBETASOL
     Indication: Psoriasis
     Route: 061
  8. CLOBETASOL [Suspect]
     Active Substance: CLOBETASOL
     Route: 065
  9. TREMFYA [Suspect]
     Active Substance: GUSELKUMAB
     Indication: Psoriasis
     Route: 065
     Dates: start: 2021
  10. TRIAMCINOLONE [Suspect]
     Active Substance: TRIAMCINOLONE
     Indication: Psoriasis
     Route: 065
     Dates: start: 2020
  11. TRIAMCINOLONE [Suspect]
     Active Substance: TRIAMCINOLONE
     Indication: Intertrigo
  12. TALTZ [Suspect]
     Active Substance: IXEKIZUMAB
     Indication: Psoriasis
     Route: 065
  13. KEFLEX [Suspect]
     Active Substance: CEPHALEXIN
     Indication: Psoriasis
     Route: 065
  14. HYDROXYZINE [Suspect]
     Active Substance: HYDROXYZINE HYDROCHLORIDE
     Indication: Psoriasis
     Route: 065
     Dates: start: 2022
  15. COSENTYX [Suspect]
     Active Substance: SECUKINUMAB
     Indication: Psoriasis
     Route: 065
     Dates: start: 2023
  16. TOPICORT [Suspect]
     Active Substance: DESOXIMETASONE
     Indication: Psoriasis
     Route: 065
  17. CORDRAN [Suspect]
     Active Substance: FLURANDRENOLIDE
     Indication: Psoriasis
     Route: 065
  18. ENSTILAR [Suspect]
     Active Substance: BETAMETHASONE DIPROPIONATE\CALCIPOTRIENE HYDRATE
     Indication: Psoriasis
     Route: 065
  19. HUMIRA [Suspect]
     Active Substance: ADALIMUMAB
     Indication: Psoriasis
     Route: 065
  20. NYSTATIN [Suspect]
     Active Substance: NYSTATIN
     Indication: Intertrigo
     Route: 065
  21. UREA [Suspect]
     Active Substance: UREA
     Indication: Psoriasis
     Route: 065
     Dates: start: 201407
  22. SERNIVO [Suspect]
     Active Substance: BETAMETHASONE DIPROPIONATE
     Indication: Psoriasis
     Route: 065
     Dates: start: 2017
  23. HALOG [Suspect]
     Active Substance: HALCINONIDE
     Indication: Psoriasis
     Route: 065
     Dates: start: 201407
  24. HALOG [Suspect]
     Active Substance: HALCINONIDE
     Route: 065
  25. STELARA [Suspect]
     Active Substance: USTEKINUMAB
     Indication: Psoriasis
     Route: 065
  26. STELARA [Suspect]
     Active Substance: USTEKINUMAB
     Route: 065
  27. ENSTILAR [Suspect]
     Active Substance: BETAMETHASONE DIPROPIONATE\CALCIPOTRIENE HYDRATE
     Indication: Psoriasis
     Route: 065
  28. HYDROCORTISONE [Suspect]
     Active Substance: HYDROCORTISONE
     Indication: Psoriasis
     Route: 065
  29. KETOCONAZOLE [Concomitant]
     Active Substance: KETOCONAZOLE
     Indication: Intertrigo
     Route: 065
  30. ZEASORB [Concomitant]
     Active Substance: MICONAZOLE NITRATE
     Indication: Intertrigo
     Route: 065
  31. BENSAL [Concomitant]
     Indication: Intertrigo
     Route: 065
  32. XOLEGEL [Concomitant]
     Active Substance: KETOCONAZOLE
     Indication: Angular cheilitis
     Route: 065
  33. XOLEGEL [Concomitant]
     Active Substance: KETOCONAZOLE
     Route: 065
  34. CEPHALEXIN [Concomitant]
     Active Substance: CEPHALEXIN
     Indication: Infection
     Route: 065
  35. CEPHALEXIN [Concomitant]
     Active Substance: CEPHALEXIN
     Route: 065
  36. FLUCONAZOLE [Concomitant]
     Active Substance: FLUCONAZOLE
     Indication: Intertrigo
     Route: 065
  37. METROCREAM [Concomitant]
     Active Substance: METRONIDAZOLE
     Indication: Rosacea
     Route: 061

REACTIONS (1)
  - Drug ineffective [Unknown]
